FAERS Safety Report 9250022 (Version 1)
Quarter: 2013Q2

REPORT INFORMATION
  Report Type: Spontaneous
  Country: US (occurrence: US)
  Receive Date: 20130424
  Receipt Date: 20130424
  Transmission Date: 20140414
  Serious: Yes (Hospitalization)
  Sender: FDA-Public Use
  Company Number: US-ROCHE-1216114

PATIENT
  Sex: Male

DRUGS (3)
  1. INVIRASE [Suspect]
     Indication: HIV INFECTION
     Dosage: DAILY
     Route: 065
  2. ISENTRESS [Suspect]
     Indication: HIV INFECTION
     Route: 065
  3. EPIVIR [Suspect]
     Indication: HIV INFECTION
     Dosage: DAILY
     Route: 048

REACTIONS (4)
  - Renal failure [Not Recovered/Not Resolved]
  - Pneumonia [Not Recovered/Not Resolved]
  - Dehydration [Not Recovered/Not Resolved]
  - Blood creatinine increased [Not Recovered/Not Resolved]
